FAERS Safety Report 5621210-1 (Version None)
Quarter: 2008Q1

REPORT INFORMATION
  Report Type: 
  Country: None (occurrence: None)
  Receive Date: 20080114
  Receipt Date: 20061211
  Transmission Date: 20080703
  Serious: Yes (Hospitalization)
  Sender: FDA-Public Use
  Company Number: A03200607471

PATIENT
  Sex: Female

DRUGS (1)
  1. PLAVIX [Suspect]
     Indication: CARDIAC DISORDER
     Dosage: 75 MG QD - ORAL
     Route: 048

REACTIONS (1)
  - CORONARY ARTERIAL STENT INSERTION [None]
